FAERS Safety Report 12787086 (Version 1)
Quarter: 2016Q3

REPORT INFORMATION
  Report Type: Report from Study
  Country: AT (occurrence: AT)
  Receive Date: 20160928
  Receipt Date: 20160928
  Transmission Date: 20161109
  Serious: No
  Sender: FDA-Public Use
  Company Number: AT-TOLMAR, INC.-2009AT000908

PATIENT
  Sex: Male
  Weight: 78 kg

DRUGS (5)
  1. FARLUTAL [Suspect]
     Active Substance: MEDROXYPROGESTERONE ACETATE
     Indication: HOT FLUSH
  2. BICALUTAMID ACTAVIS [Suspect]
     Active Substance: BICALUTAMIDE
     Indication: PRODUCT USED FOR UNKNOWN INDICATION
  3. ELIGARD [Suspect]
     Active Substance: LEUPROLIDE ACETATE
     Indication: TUMOUR INVASION
     Dosage: 45 MG, UNK
     Route: 058
     Dates: start: 20090602
  4. FARLUTAL [Suspect]
     Active Substance: MEDROXYPROGESTERONE ACETATE
     Indication: HYPERHIDROSIS
     Dosage: 1000 MG, UNK
  5. LISINOPRIL. [Concomitant]
     Active Substance: LISINOPRIL
     Dosage: UNK
     Dates: start: 200707

REACTIONS (2)
  - Hot flush [Unknown]
  - Hyperhidrosis [Unknown]
